FAERS Safety Report 7234052-0 (Version None)
Quarter: 2011Q1

REPORT INFORMATION
  Report Type: 
  Country: None (occurrence: None)
  Receive Date: 20110119
  Receipt Date: 20110110
  Transmission Date: 20110831
  Serious: Yes (Hospitalization)
  Sender: FDA-Public Use
  Company Number: FR-ASTRAZENECA-2011SE02085

PATIENT
  Age: 18 Year
  Sex: Female

DRUGS (1)
  1. ZOMIG [Suspect]
     Indication: MIGRAINE WITH AURA
     Route: 048
     Dates: start: 20101122, end: 20101122

REACTIONS (2)
  - ISCHAEMIC STROKE [None]
  - HEMIANOPIA [None]
